FAERS Safety Report 9380427 (Version 6)
Quarter: 2013Q4

REPORT INFORMATION
  Report Type: Report from Study
  Country: FR (occurrence: FR)
  Receive Date: 20130702
  Receipt Date: 20131107
  Transmission Date: 20140711
  Serious: Yes (Disabling, Other)
  Sender: FDA-Public Use
  Company Number: FR-BAYER-2013-079662

PATIENT
  Age: 53 Year
  Sex: Male
  Weight: 120 kg

DRUGS (6)
  1. REGORAFENIB [Suspect]
     Indication: COLORECTAL CANCER METASTATIC
     Dosage: DAILY DOSE 160 MG
     Route: 048
     Dates: start: 20130303, end: 20130425
  2. REGORAFENIB [Interacting]
     Indication: COLORECTAL CANCER METASTATIC
     Dosage: DAILY DOSE 120 MG
     Route: 048
     Dates: start: 20130506, end: 20130529
  3. REGORAFENIB [Interacting]
     Indication: COLORECTAL CANCER METASTATIC
     Dosage: DAILY DOSE 160 MG
     Route: 048
     Dates: start: 20130529, end: 20130623
  4. REGORAFENIB [Interacting]
     Indication: COLORECTAL CANCER METASTATIC
     Dosage: DAILY DOSE 160 MG
     Route: 048
  5. PREVISCAN [Interacting]
     Indication: ARRHYTHMIA
     Dosage: UNK
     Route: 048
     Dates: end: 20130410
  6. PREVISCAN [Interacting]
     Indication: ATRIAL FIBRILLATION

REACTIONS (9)
  - Overdose [Recovered/Resolved]
  - Palmar-plantar erythrodysaesthesia syndrome [Recovered/Resolved with Sequelae]
  - Hepatomegaly [Recovered/Resolved]
  - Mucosal inflammation [Recovered/Resolved]
  - Asthenia [Recovered/Resolved]
  - Dysgeusia [Recovered/Resolved]
  - Decreased appetite [Recovered/Resolved]
  - Palmar-plantar erythrodysaesthesia syndrome [Recovered/Resolved]
  - Thyroid disorder [Not Recovered/Not Resolved]
